FAERS Safety Report 11354163 (Version 1)
Quarter: 2015Q3

REPORT INFORMATION
  Report Type: Spontaneous
  Country: US (occurrence: US)
  Receive Date: 20150807
  Receipt Date: 20150807
  Transmission Date: 20151125
  Serious: No
  Sender: FDA-Public Use
  Company Number: US-JNJFOC-20141014018

PATIENT
  Age: 67 Year
  Sex: Female
  Weight: 56.7 kg

DRUGS (6)
  1. FLAXSEED [Concomitant]
     Active Substance: FLAX SEED
     Indication: OSTEOPOROSIS
     Route: 065
  2. CLARINEX [Concomitant]
     Active Substance: DESLORATADINE
     Indication: SINUS DISORDER
     Route: 065
     Dates: start: 2006
  3. SUDAFED 12 HOUR [Suspect]
     Active Substance: PSEUDOEPHEDRINE HYDROCHLORIDE
     Indication: SINUS DISORDER
     Dosage: 1 TO 2 CAPLETS DAILY
     Route: 048
  4. FLAXSEED [Concomitant]
     Active Substance: FLAX SEED
     Indication: ARTHRITIS
     Route: 065
  5. MAGNESIUM [Concomitant]
     Active Substance: MAGNESIUM
     Indication: ARTHRITIS
     Route: 065
  6. MAGNESIUM [Concomitant]
     Active Substance: MAGNESIUM
     Indication: OSTEOPOROSIS
     Route: 065

REACTIONS (2)
  - Amphetamines positive [Not Recovered/Not Resolved]
  - Product label issue [Unknown]

NARRATIVE: CASE EVENT DATE: 20140924
